FAERS Safety Report 13710866 (Version 1)
Quarter: 2017Q3

REPORT INFORMATION
  Report Type: Spontaneous
  Country: US (occurrence: US)
  Receive Date: 20170701
  Receipt Date: 20170701
  Transmission Date: 20171127
  Serious: Yes (Hospitalization)
  Sender: FDA-Public Use
  Company Number: None

PATIENT
  Age: 60 Year
  Sex: Female
  Weight: 87.9 kg

DRUGS (3)
  1. TAXOL [Suspect]
     Active Substance: PACLITAXEL
     Dates: end: 20170518
  2. CARBOPLATIN. [Suspect]
     Active Substance: CARBOPLATIN
     Dates: end: 20170518
  3. METFORMIN HYDROCHLORIDE. [Suspect]
     Active Substance: METFORMIN HYDROCHLORIDE
     Dates: end: 20170607

REACTIONS (6)
  - Blood bilirubin increased [None]
  - Disease progression [None]
  - Hepatic enzyme abnormal [None]
  - Abdominal pain [None]
  - Haemoglobin decreased [None]
  - Biliary dilatation [None]

NARRATIVE: CASE EVENT DATE: 20170615
